FAERS Safety Report 5929922-7 (Version None)
Quarter: 2008Q4

REPORT INFORMATION
  Report Type: 
  Country: None (occurrence: None)
  Receive Date: 20081024
  Receipt Date: 20081017
  Transmission Date: 20090506
  Serious: Yes (Hospitalization)
  Sender: FDA-Public Use
  Company Number: US-ABBOTT-08P-163-0482513-00

PATIENT
  Sex: Female

DRUGS (10)
  1. DEPAKOTE [Suspect]
     Indication: MOOD SWINGS
     Route: 048
     Dates: start: 19990801, end: 20000101
  2. DEPAKOTE [Suspect]
     Indication: SCHIZOAFFECTIVE DISORDER
     Route: 048
     Dates: start: 20001201, end: 20010201
  3. DEPAKOTE [Suspect]
     Route: 048
     Dates: start: 20030101, end: 20040101
  4. DEPAKOTE [Suspect]
     Route: 048
     Dates: start: 20050101
  5. DEPAKOTE [Suspect]
     Route: 048
     Dates: start: 20080301, end: 20080907
  6. DEPAKOTE [Suspect]
     Route: 048
     Dates: start: 20080908, end: 20080917
  7. DEPAKOTE [Suspect]
     Route: 048
     Dates: start: 20080918, end: 20080927
  8. DEPAKOTE [Suspect]
     Route: 048
     Dates: start: 20080928, end: 20081007
  9. DEPAKOTE [Suspect]
     Route: 048
     Dates: start: 20081008, end: 20081017
  10. RISPERIDONE [Concomitant]
     Indication: DRUG USE FOR UNKNOWN INDICATION
     Route: 050

REACTIONS (12)
  - ABNORMAL BEHAVIOUR [None]
  - AGITATION [None]
  - ALOPECIA [None]
  - BRUXISM [None]
  - FOOT FRACTURE [None]
  - HAIR COLOUR CHANGES [None]
  - PHYSICAL ASSAULT [None]
  - RIB FRACTURE [None]
  - ROAD TRAFFIC ACCIDENT [None]
  - SPINAL FRACTURE [None]
  - URINARY INCONTINENCE [None]
  - WEIGHT INCREASED [None]
